FAERS Safety Report 23546117 (Version 1)
Quarter: 2024Q1

REPORT INFORMATION
  Report Type: Spontaneous
  Country: US (occurrence: US)
  Receive Date: 20240220
  Receipt Date: 20240220
  Transmission Date: 20240410
  Serious: Yes (Other)
  Sender: FDA-Public Use
  Company Number: US-MLMSERVICE-20240212-4828355-1

PATIENT
  Age: 35 Year
  Sex: Male

DRUGS (15)
  1. LORAZEPAM [Suspect]
     Active Substance: LORAZEPAM
     Indication: Catatonia
     Route: 065
  2. LORAZEPAM [Suspect]
     Active Substance: LORAZEPAM
     Dosage: HIGHER DOSES
     Route: 065
  3. METHOTREXATE [Concomitant]
     Active Substance: METHOTREXATE
     Indication: B-cell type acute leukaemia
     Route: 037
  4. DEPAKOTE [Concomitant]
     Active Substance: DIVALPROEX SODIUM
     Indication: Agitation
     Route: 065
  5. MEMANTINE [Concomitant]
     Active Substance: MEMANTINE
     Indication: Toxicity to various agents
     Route: 065
  6. MEMANTINE [Concomitant]
     Active Substance: MEMANTINE
     Indication: Catatonia
  7. MEMANTINE [Concomitant]
     Active Substance: MEMANTINE
     Indication: Dementia
  8. ESCITALOPRAM [Concomitant]
     Active Substance: ESCITALOPRAM OXALATE
     Indication: Depressive symptom
     Dosage: LOW DOSE
     Route: 065
  9. ESCITALOPRAM [Concomitant]
     Active Substance: ESCITALOPRAM OXALATE
     Indication: Catatonia
  10. ESCITALOPRAM [Concomitant]
     Active Substance: ESCITALOPRAM OXALATE
     Indication: Dementia
  11. ESCITALOPRAM [Concomitant]
     Active Substance: ESCITALOPRAM OXALATE
     Indication: Catatonia
  12. METOCLOPRAMIDE [Concomitant]
     Active Substance: METOCLOPRAMIDE
     Indication: Catatonia
     Route: 065
  13. METOCLOPRAMIDE [Concomitant]
     Active Substance: METOCLOPRAMIDE
     Indication: Catatonia
  14. METOCLOPRAMIDE [Concomitant]
     Active Substance: METOCLOPRAMIDE
     Indication: Dementia
  15. METOCLOPRAMIDE [Concomitant]
     Active Substance: METOCLOPRAMIDE
     Indication: Catatonia

REACTIONS (2)
  - Delirium [Recovering/Resolving]
  - Condition aggravated [Recovering/Resolving]
